FAERS Safety Report 11443061 (Version 1)
Quarter: 2015Q3

REPORT INFORMATION
  Report Type: Spontaneous
  Country: US (occurrence: US)
  Receive Date: 20150901
  Receipt Date: 20150901
  Transmission Date: 20151125
  Serious: No
  Sender: FDA-Public Use
  Company Number: US-PFIZER INC-2015287652

PATIENT
  Sex: Male

DRUGS (3)
  1. VIAGRA [Suspect]
     Active Substance: SILDENAFIL CITRATE
     Indication: ANDROGEN DEFICIENCY
     Dosage: UNK
  2. GLUCOTROL XL [Concomitant]
     Active Substance: GLIPIZIDE
     Dosage: UNK
  3. VIAGRA [Suspect]
     Active Substance: SILDENAFIL CITRATE
     Indication: LIBIDO DECREASED

REACTIONS (3)
  - Cyanopsia [Unknown]
  - Vision blurred [Unknown]
  - Drug ineffective for unapproved indication [Unknown]
